FAERS Safety Report 17484706 (Version 1)
Quarter: 2020Q1

REPORT INFORMATION
  Report Type: Report from Study
  Country: ES (occurrence: ES)
  Receive Date: 20200302
  Receipt Date: 20200302
  Transmission Date: 20200409
  Serious: Yes (Hospitalization)
  Sender: FDA-Public Use
  Company Number: ES-MYLANLABS-2020M1021901

PATIENT
  Age: 76 Year
  Sex: Male

DRUGS (6)
  1. CELLCEPT [Concomitant]
     Active Substance: MYCOPHENOLATE MOFETIL\MYCOPHENOLATE MOFETIL HYDROCHLORIDE
     Dosage: 2 GRAM, QD
     Route: 048
     Dates: start: 20091015
  2. DEXAMETASONA                       /00016001/ [Concomitant]
     Active Substance: DEXAMETHASONE
     Indication: INTRACRANIAL HAEMATOMA
     Dosage: 8 MILLIGRAM, QD
     Route: 048
     Dates: start: 20190704, end: 20190720
  3. DEXAMETASONA                       /00016001/ [Suspect]
     Active Substance: DEXAMETHASONE
     Indication: INTRACRANIAL HAEMATOMA
     Dosage: 2 MILLIGRAM, QD
     Route: 048
     Dates: start: 20190728, end: 20190803
  4. DEXAMETASONA                       /00016001/ [Concomitant]
     Active Substance: DEXAMETHASONE
     Dosage: 4 MILLIGRAM, QD
     Route: 048
     Dates: start: 20190721, end: 20190727
  5. DOXAZOSIN [Suspect]
     Active Substance: DOXAZOSIN MESYLATE
     Indication: HYPERTENSION
     Dosage: 8 MILLIGRAM, QD
     Route: 048
     Dates: start: 201901, end: 20190809
  6. PLAVIX [Concomitant]
     Active Substance: CLOPIDOGREL BISULFATE
     Dosage: 75 MILLIGRAM, QD
     Route: 048
     Dates: start: 20140829, end: 20190811

REACTIONS (1)
  - Cardiac failure congestive [Recovered/Resolved]

NARRATIVE: CASE EVENT DATE: 20190805
